FAERS Safety Report 8534181-5 (Version None)
Quarter: 2012Q3

REPORT INFORMATION
  Report Type: 
  Country: None (occurrence: None)
  Receive Date: 20120724
  Receipt Date: 20120716
  Transmission Date: 20120928
  Serious: Yes (Other)
  Sender: FDA-Public Use
  Company Number: US-VERTEX PHARMACEUTICALS INC.-AE-2012-009202

PATIENT
  Sex: Male

DRUGS (5)
  1. RIBAVIRIN [Concomitant]
  2. RIBAVIRIN [Concomitant]
     Dates: start: 20120601
  3. PEGASYS [Concomitant]
     Indication: HEPATITIS C
     Dates: start: 20120302
  4. RIBAVIRIN [Concomitant]
     Indication: HEPATITIS C
     Dates: start: 20120302
  5. INCIVEK [Suspect]
     Indication: HEPATITIS C
     Route: 048
     Dates: start: 20120302, end: 20120525

REACTIONS (6)
  - ASTHENIA [None]
  - CHOLELITHIASIS [None]
  - FATIGUE [None]
  - RASH [None]
  - DIZZINESS [None]
  - ANAEMIA [None]
